FAERS Safety Report 13478784 (Version 3)
Quarter: 2017Q2

REPORT INFORMATION
  Report Type: Report from Study
  Country: US (occurrence: US)
  Receive Date: 20170425
  Receipt Date: 20170519
  Transmission Date: 20170830
  Serious: No
  Sender: FDA-Public Use
  Company Number: US-JAZZ-2017-US-004669

PATIENT
  Age: 32 Year
  Sex: Female

DRUGS (7)
  1. XYREM [Suspect]
     Active Substance: SODIUM OXYBATE
     Dosage: 3 G, BID
     Route: 048
     Dates: start: 20170407
  2. MONTELUKAST [Concomitant]
     Active Substance: MONTELUKAST SODIUM
  3. RITALIN [Concomitant]
     Active Substance: METHYLPHENIDATE HYDROCHLORIDE
  4. PROGESTERONE. [Concomitant]
     Active Substance: PROGESTERONE
  5. MELOXICAM. [Concomitant]
     Active Substance: MELOXICAM
  6. TRIAMTERENE. [Concomitant]
     Active Substance: TRIAMTERENE
  7. XYREM [Suspect]
     Active Substance: SODIUM OXYBATE
     Indication: NARCOLEPSY
     Dosage: 2.25 G, BID
     Route: 048
     Dates: start: 20170331, end: 20170406

REACTIONS (7)
  - Hypersensitivity [Not Recovered/Not Resolved]
  - Somnolence [Not Recovered/Not Resolved]
  - Conjunctivitis [Not Recovered/Not Resolved]
  - Back pain [Unknown]
  - Ear pain [Unknown]
  - Urinary tract infection [Not Recovered/Not Resolved]
  - Viral upper respiratory tract infection [Not Recovered/Not Resolved]

NARRATIVE: CASE EVENT DATE: 201704
